FAERS Safety Report 8447176-7 (Version None)
Quarter: 2012Q2

REPORT INFORMATION
  Report Type: 
  Country: None (occurrence: None)
  Receive Date: 20120619
  Receipt Date: 20120613
  Transmission Date: 20120825
  Serious: No
  Sender: FDA-Public Use
  Company Number: US-PFIZER INC-2012143529

PATIENT
  Sex: Female
  Weight: 61.224 kg

DRUGS (6)
  1. REVATIO [Suspect]
     Indication: BLOOD PRESSURE INCREASED
     Dosage: 20 MG, 3X/DAY
     Dates: start: 20120101
  2. WARFARIN [Concomitant]
     Indication: CARDIAC DISORDER
     Dosage: 2.5 MG, DAILY
  3. DILTIAZEM [Concomitant]
     Indication: HEART RATE IRREGULAR
     Dosage: 120 MG, DAILY
  4. FUROSEMIDE [Suspect]
     Dosage: 80 MG IN MORNING AND 80 MG IN AFTERNOON
  5. FUROSEMIDE [Suspect]
     Indication: DIURETIC THERAPY
     Dosage: 80 MG, 2X/DAY
  6. FEBUXOSTAT [Concomitant]
     Indication: GOUT
     Dosage: 40 MG, UNK

REACTIONS (1)
  - WEIGHT DECREASED [None]
